FAERS Safety Report 15768831 (Version 1)
Quarter: 2018Q4

REPORT INFORMATION
  Report Type: Spontaneous
  Country: GR (occurrence: GR)
  Receive Date: 20181228
  Receipt Date: 20181228
  Transmission Date: 20190205
  Serious: Yes (Hospitalization, Other)
  Sender: FDA-Public Use
  Company Number: GR-INGENUS PHARMACEUTICALS NJ, LLC-ING201812-001201

PATIENT
  Age: 23 Year
  Sex: Male

DRUGS (1)
  1. CARISOPRODOL, ASPIRIN AND CODEINE PHOSPHATE [Suspect]
     Active Substance: ASPIRIN\CARISOPRODOL\CODEINE PHOSPHATE
     Dosage: CONSUMPTION OF 5 TO 8 TABLETS OF 500MG
     Route: 048

REACTIONS (2)
  - Shock haemorrhagic [Recovered/Resolved]
  - Splenic rupture [Recovered/Resolved]
